FAERS Safety Report 11661354 (Version 3)
Quarter: 2018Q3

REPORT INFORMATION
  Report Type: Spontaneous
  Country: US (occurrence: US)
  Receive Date: 20151026
  Receipt Date: 20180905
  Transmission Date: 20181010
  Serious: No
  Sender: FDA-Public Use
  Company Number: US-ASTRAZENECA-2015SF00459

PATIENT
  Sex: Female

DRUGS (2)
  1. BYETTA [Suspect]
     Active Substance: EXENATIDE
     Dosage: 250 MCG / 2.4 ML PEN,10 UG TWO TIMES A DAY
     Route: 058
  2. BYDUREON BCISE [Suspect]
     Active Substance: EXENATIDE
     Dosage: 2.0MG UNKNOWN
     Route: 065
     Dates: start: 2018

REACTIONS (15)
  - Injection site bruising [Unknown]
  - Nausea [Unknown]
  - Device leakage [Unknown]
  - Injection site injury [Unknown]
  - Injection site pain [Unknown]
  - Blood glucose increased [Unknown]
  - Injection site extravasation [Unknown]
  - Skin erosion [Unknown]
  - Headache [Unknown]
  - Intentional product misuse [Unknown]
  - Underdose [Unknown]
  - Malaise [Unknown]
  - Extra dose administered [Unknown]
  - Injection site haemorrhage [Unknown]
  - Drug ineffective [Unknown]
